FAERS Safety Report 12179579 (Version 1)
Quarter: 2016Q1

REPORT INFORMATION
  Report Type: Spontaneous
  Country: US (occurrence: US)
  Receive Date: 20160314
  Receipt Date: 20160314
  Transmission Date: 20160526
  Serious: Yes (Other)
  Sender: FDA-Public Use
  Company Number: US-ABBVIE-16P-163-1582923-00

PATIENT
  Age: 45 Year
  Sex: Male

DRUGS (7)
  1. VALPROATE SODIUM. [Suspect]
     Active Substance: VALPROATE SODIUM
     Indication: IRRITABILITY
     Route: 065
  2. LITHIUM. [Suspect]
     Active Substance: LITHIUM
     Indication: AFFECTIVE DISORDER
  3. LITHIUM. [Suspect]
     Active Substance: LITHIUM
     Indication: ABNORMAL BEHAVIOUR
  4. VALPROATE SODIUM. [Suspect]
     Active Substance: VALPROATE SODIUM
     Indication: ANGER
  5. LITHIUM. [Suspect]
     Active Substance: LITHIUM
     Indication: IRRITABILITY
     Route: 065
  6. VALPROATE SODIUM. [Suspect]
     Active Substance: VALPROATE SODIUM
     Indication: AFFECTIVE DISORDER
  7. LITHIUM. [Suspect]
     Active Substance: LITHIUM
     Indication: ANGER

REACTIONS (4)
  - Tremor [Unknown]
  - Hypoglycaemia [Unknown]
  - Liver function test abnormal [Unknown]
  - Hyperhidrosis [Unknown]
